FAERS Safety Report 5660971-2 (Version None)
Quarter: 2008Q1

REPORT INFORMATION
  Report Type: 
  Country: None (occurrence: None)
  Receive Date: 20080311
  Receipt Date: 20080229
  Transmission Date: 20080703
  Serious: Yes (Life-Threatening, Hospitalization)
  Sender: FDA-Public Use
  Company Number: BE-PFIZER INC-2008012329

PATIENT
  Sex: Male
  Weight: 92 kg

DRUGS (4)
  1. SUTENT [Suspect]
     Indication: RENAL CELL CARCINOMA
     Route: 048
     Dates: start: 20071130, end: 20080124
  2. CORTICOSTEROIDS [Concomitant]
  3. METHYLPREDNISOLONE [Concomitant]
     Route: 048
  4. DURAGESIC-100 [Concomitant]
     Route: 062

REACTIONS (1)
  - CHOLECYSTITIS INFECTIVE [None]
